FAERS Safety Report 5843296-1 (Version None)
Quarter: 2008Q3

REPORT INFORMATION
  Report Type: 
  Country: None (occurrence: None)
  Receive Date: 20080813
  Receipt Date: 20080617
  Transmission Date: 20090109
  Serious: No
  Sender: FDA-Public Use
  Company Number: US-BAYER-200812766BCC

PATIENT
  Age: 24 Month
  Sex: Female
  Weight: 16 kg

DRUGS (1)
  1. ALEVE (CAPLET) [Suspect]
     Indication: ACCIDENTAL EXPOSURE
     Dosage: UNIT DOSE: 220 MG
     Route: 048
     Dates: start: 20080617

REACTIONS (1)
  - NO ADVERSE EVENT [None]
